FAERS Safety Report 16160135 (Version 2)
Quarter: 2019Q2

REPORT INFORMATION
  Report Type: Spontaneous
  Country: US (occurrence: US)
  Receive Date: 20190404
  Receipt Date: 20190529
  Transmission Date: 20190711
  Serious: Yes (Death, Hospitalization, Other)
  Sender: FDA-Public Use
  Company Number: US-PFIZER INC-2019142675

PATIENT
  Age: 57 Year
  Sex: Female
  Weight: 37.19 kg

DRUGS (1)
  1. XALKORI [Suspect]
     Active Substance: CRIZOTINIB
     Indication: NON-SMALL CELL LUNG CANCER
     Dosage: 250 MG, 2X/DAY
     Route: 048

REACTIONS (3)
  - Pneumonia [Unknown]
  - Pulmonary oedema [Unknown]
  - Oxygen consumption decreased [Fatal]
